FAERS Safety Report 18389971 (Version 1)
Quarter: 2020Q4

REPORT INFORMATION
  Report Type: Spontaneous
  Country: DK (occurrence: DK)
  Receive Date: 20201015
  Receipt Date: 20201015
  Transmission Date: 20210114
  Serious: Yes (Other)
  Sender: FDA-Public Use
  Company Number: DK-TAKEDA-2020TUS042977

PATIENT
  Age: 28 Year
  Sex: Male

DRUGS (3)
  1. MESALAZINE [Concomitant]
     Active Substance: MESALAMINE
     Indication: COLITIS ULCERATIVE
     Dosage: 1600 MILLIGRAM, QD
     Route: 048
     Dates: start: 20171031
  2. ENTYVIO [Suspect]
     Active Substance: VEDOLIZUMAB
     Indication: COLITIS ULCERATIVE
     Dosage: 300 MILLIGRAM
     Route: 042
     Dates: start: 20180606, end: 20200902
  3. ENTYVIO [Suspect]
     Active Substance: VEDOLIZUMAB
     Indication: COLITIS ULCERATIVE
     Dosage: 108 MILLIGRAM, Q2WEEKS
     Route: 058
     Dates: start: 20200902

REACTIONS (1)
  - Leukopenia [Unknown]
